FAERS Safety Report 18746808 (Version 1)
Quarter: 2021Q1

REPORT INFORMATION
  Report Type: Spontaneous
  Country: ES (occurrence: ES)
  Receive Date: 20210115
  Receipt Date: 20210115
  Transmission Date: 20210419
  Serious: Yes (Other)
  Sender: FDA-Public Use
  Company Number: ES-PFIZER INC-2021016290

PATIENT
  Age: 57 Year
  Sex: Female
  Weight: 72 kg

DRUGS (2)
  1. ZITROMAX [Suspect]
     Active Substance: AZITHROMYCIN
     Indication: COUGH
  2. ZITROMAX [Suspect]
     Active Substance: AZITHROMYCIN
     Indication: PYREXIA
     Dosage: 500 MG, 1X/DAY
     Route: 048
     Dates: start: 20201126, end: 20201128

REACTIONS (3)
  - Laryngeal oedema [Recovering/Resolving]
  - Hypotension [Recovering/Resolving]
  - Rash [Recovering/Resolving]

NARRATIVE: CASE EVENT DATE: 202011
